FAERS Safety Report 9260840 (Version 1)
Quarter: 2013Q2

REPORT INFORMATION
  Report Type: Spontaneous
  Country: US (occurrence: US)
  Receive Date: 20130429
  Receipt Date: 20130429
  Transmission Date: 20140414
  Serious: Yes (Other)
  Sender: FDA-Public Use
  Company Number: US-PFIZER INC-2013131692

PATIENT
  Age: 41 Year
  Sex: Male
  Weight: 80.27 kg

DRUGS (2)
  1. XANAX [Suspect]
     Indication: ANXIETY
     Dosage: 1 MG, 3X/DAY
     Route: 048
     Dates: start: 200703
  2. KLONOPIN [Concomitant]
     Dosage: UNK

REACTIONS (1)
  - Brain neoplasm [Unknown]
